FAERS Safety Report 4395109-5 (Version None)
Quarter: 2004Q3

REPORT INFORMATION
  Report Type: 
  Country: None (occurrence: None)
  Receive Date: 20040706
  Receipt Date: 20040630
  Transmission Date: 20050211
  Serious: Yes (Hospitalization, Disabling, Other)
  Sender: FDA-Public Use
  Company Number: 2004-03-1702

PATIENT
  Age: 58 Year
  Sex: Female
  Weight: 68 kg

DRUGS (3)
  1. PEG-INTRON [Suspect]
     Indication: PLASMACYTOMA
     Dosage: 50 MCG QWK SUBCUTANEOUS
     Route: 058
     Dates: start: 20040301, end: 20040301
  2. MEPINDOLOL [Concomitant]
  3. ZOMETA [Concomitant]

REACTIONS (8)
  - ACTIVITIES OF DAILY LIVING IMPAIRED [None]
  - CATARACT [None]
  - IMPAIRED DRIVING ABILITY [None]
  - MACULAR OEDEMA [None]
  - MACULOPATHY [None]
  - NUCLEAR MAGNETIC RESONANCE IMAGING BRAIN ABNORMAL [None]
  - RETINOGRAM ABNORMAL [None]
  - VISUAL ACUITY REDUCED [None]
